FAERS Safety Report 17477551 (Version 1)
Quarter: 2020Q1

REPORT INFORMATION
  Report Type: Spontaneous
  Country: FR (occurrence: FR)
  Receive Date: 20200228
  Receipt Date: 20200228
  Transmission Date: 20200409
  Serious: Yes (Life-Threatening)
  Sender: FDA-Public Use
  Company Number: FR-PFIZER INC-2020083400

PATIENT
  Sex: Male
  Weight: 1 kg

DRUGS (1)
  1. IBUPROFEN. [Suspect]
     Active Substance: IBUPROFEN
     Dosage: UNK
     Route: 064
     Dates: start: 201907, end: 201911

REACTIONS (3)
  - Maternal exposure during pregnancy [Recovered/Resolved with Sequelae]
  - Neonatal respiratory distress [Recovered/Resolved]
  - Premature baby [Recovered/Resolved with Sequelae]

NARRATIVE: CASE EVENT DATE: 20200109
